FAERS Safety Report 7112257-7 (Version None)
Quarter: 2010Q4

REPORT INFORMATION
  Report Type: 
  Country: None (occurrence: None)
  Receive Date: 20101119
  Receipt Date: 20100430
  Transmission Date: 20110411
  Serious: No
  Sender: FDA-Public Use
  Company Number: A0857495A

PATIENT
  Sex: Male

DRUGS (12)
  1. AVODART [Suspect]
     Dosage: 1CAP PER DAY
     Route: 048
     Dates: start: 20020101, end: 20100416
  2. FLOMAX [Concomitant]
  3. PROTONIX [Concomitant]
  4. LIPITOR [Concomitant]
  5. ELAVIL [Concomitant]
  6. MICARDIS [Concomitant]
  7. ASPIRIN [Concomitant]
  8. GLUCOSAMINE/CHONDROITIN [Concomitant]
  9. FISH OIL [Concomitant]
  10. ALEVE (CAPLET) [Concomitant]
  11. CORTIZONE SHOT [Concomitant]
  12. VERAPAMIL [Concomitant]

REACTIONS (7)
  - BREAST ENLARGEMENT [None]
  - BREAST MASS [None]
  - BREAST TENDERNESS [None]
  - EJACULATION DISORDER [None]
  - ERECTILE DYSFUNCTION [None]
  - LIBIDO DECREASED [None]
  - SEMEN VISCOSITY ABNORMAL [None]
